FAERS Safety Report 16349842 (Version 2)
Quarter: 2019Q2

REPORT INFORMATION
  Report Type: Spontaneous
  Country: JP (occurrence: JP)
  Receive Date: 20190523
  Receipt Date: 20190604
  Transmission Date: 20190711
  Serious: Yes (Hospitalization)
  Sender: FDA-Public Use
  Company Number: PHJP2019JP005582

PATIENT
  Age: 56 Year
  Sex: Female

DRUGS (1)
  1. VOLTAREN SUP [Suspect]
     Active Substance: DICLOFENAC SODIUM
     Indication: LUMBAR SPINAL STENOSIS
     Dosage: UNK
     Route: 054

REACTIONS (5)
  - Altered state of consciousness [Unknown]
  - Anaphylactic shock [Unknown]
  - Angioedema [Unknown]
  - Pruritus generalised [Unknown]
  - Hypotension [Unknown]

NARRATIVE: CASE EVENT DATE: 20190409
